FAERS Safety Report 15155621 (Version 3)
Quarter: 2018Q3

REPORT INFORMATION
  Report Type: Report from Study
  Country: CN (occurrence: CN)
  Receive Date: 20180717
  Receipt Date: 20180814
  Transmission Date: 20181010
  Serious: Yes (Hospitalization)
  Sender: FDA-Public Use
  Company Number: CN-EISAI MEDICAL RESEARCH-EC-2018-042834

PATIENT
  Age: 65 Year
  Sex: Female
  Weight: 55 kg

DRUGS (4)
  1. LENVATINIB [Suspect]
     Active Substance: LENVATINIB
     Dosage: 14 MG OR PLACEBO
     Route: 048
     Dates: start: 20180507, end: 20180605
  2. LENVATINIB [Suspect]
     Active Substance: LENVATINIB
     Dosage: 10 MG OR PLACEBO
     Route: 048
     Dates: start: 20180703, end: 20180716
  3. LENVATINIB [Suspect]
     Active Substance: LENVATINIB
     Dosage: 20 MG OR PLACEBO
     Route: 048
     Dates: start: 20180327, end: 20180424
  4. LENVATINIB [Suspect]
     Active Substance: LENVATINIB
     Indication: PAPILLARY THYROID CANCER
     Dosage: 24 MG OR PLACEBO
     Route: 048
     Dates: start: 20180209, end: 20180305

REACTIONS (1)
  - Cholecystitis [Recovering/Resolving]

NARRATIVE: CASE EVENT DATE: 20180714
